FAERS Safety Report 5779569-0 (Version None)
Quarter: 2008Q2

REPORT INFORMATION
  Report Type: 
  Country: None (occurrence: None)
  Receive Date: 20080619
  Receipt Date: 20080607
  Transmission Date: 20081010
  Serious: Yes (Life-Threatening, Hospitalization, Other)
  Sender: FDA-Public Use
  Company Number: US-PFIZER INC-2008036934

PATIENT
  Sex: Female
  Weight: 63.5 kg

DRUGS (4)
  1. CHANTIX [Suspect]
     Indication: SMOKING CESSATION THERAPY
     Dates: start: 20080110, end: 20080401
  2. XANAX [Concomitant]
     Indication: POST-TRAUMATIC STRESS DISORDER
  3. HYDROCODONE [Concomitant]
     Indication: OSTEOARTHRITIS
  4. LOTREL [Concomitant]

REACTIONS (9)
  - APPARENT DEATH [None]
  - BLOOD ALCOHOL INCREASED [None]
  - DEPRESSION [None]
  - EMOTIONAL DISTRESS [None]
  - FEELING ABNORMAL [None]
  - ILL-DEFINED DISORDER [None]
  - MOOD SWINGS [None]
  - SUICIDAL IDEATION [None]
  - SUICIDE ATTEMPT [None]
